FAERS Safety Report 15539229 (Version 5)
Quarter: 2019Q2

REPORT INFORMATION
  Report Type: Report from Study
  Country: US (occurrence: US)
  Receive Date: 20181022
  Receipt Date: 20190612
  Transmission Date: 20190711
  Serious: Yes (Hospitalization)
  Sender: FDA-Public Use
  Company Number: PHHY2018US129714

PATIENT
  Sex: Male

DRUGS (3)
  1. KEPPRA [Suspect]
     Active Substance: LEVETIRACETAM
     Indication: SEIZURE
     Route: 065
  2. AFINITOR [Suspect]
     Active Substance: EVEROLIMUS
     Indication: ANGIOMYOLIPOMA
     Dosage: 10 MG, QD
     Route: 048
     Dates: start: 20161007
  3. LAMICTAL [Suspect]
     Active Substance: LAMOTRIGINE
     Indication: SEIZURE
     Route: 065

REACTIONS (9)
  - Blood pressure increased [Unknown]
  - Diarrhoea [Unknown]
  - Alopecia [Unknown]
  - Drug level below therapeutic [Unknown]
  - Abnormal behaviour [Unknown]
  - Vomiting [Unknown]
  - Epilepsy [Unknown]
  - Drug level decreased [Unknown]
  - Stomatitis [Unknown]
